FAERS Safety Report 18538943 (Version 1)
Quarter: 2020Q4

REPORT INFORMATION
  Report Type: Spontaneous
  Country: CH (occurrence: CH)
  Receive Date: 20201124
  Receipt Date: 20201124
  Transmission Date: 20210114
  Serious: Yes (Other)
  Sender: FDA-Public Use
  Company Number: CH-ROCHE-2715594

PATIENT
  Age: 58 Year
  Sex: Female

DRUGS (1)
  1. PEGASYS [Suspect]
     Active Substance: PEGINTERFERON ALFA-2A
     Indication: ESSENTIAL THROMBOCYTHAEMIA
     Route: 065

REACTIONS (5)
  - Pain [Recovered/Resolved]
  - Intentional product use issue [Unknown]
  - Swelling [Recovered/Resolved]
  - Off label use [Unknown]
  - Erythema [Recovered/Resolved]

NARRATIVE: CASE EVENT DATE: 2017
